FAERS Safety Report 5573793-8 (Version None)
Quarter: 2007Q4

REPORT INFORMATION
  Report Type: 
  Country: None (occurrence: None)
  Receive Date: 20071226
  Receipt Date: 20071102
  Transmission Date: 20080405
  Serious: Yes (Other)
  Sender: FDA-Public Use
  Company Number: US-PURDUE-USA_2007_0030792

PATIENT
  Sex: Male

DRUGS (2)
  1. OXYCONTIN [Suspect]
     Indication: BACK PAIN
     Dosage: UNK, Q12H
     Dates: start: 20000901, end: 20041201
  2. MOTRIN [Concomitant]
     Dosage: 800 MG, UNK

REACTIONS (10)
  - AMNESIA [None]
  - ANXIETY [None]
  - BIPOLAR DISORDER [None]
  - DEPRESSION [None]
  - DRUG DEPENDENCE [None]
  - HEART RATE IRREGULAR [None]
  - MALAISE [None]
  - SUICIDAL BEHAVIOUR [None]
  - TREMOR [None]
  - WITHDRAWAL SYNDROME [None]
